FAERS Safety Report 10048373 (Version 1)
Quarter: 2014Q1

REPORT INFORMATION
  Report Type: Spontaneous
  Country: IT (occurrence: IT)
  Receive Date: 20140331
  Receipt Date: 20140331
  Transmission Date: 20141002
  Serious: Yes (Hospitalization)
  Sender: FDA-Public Use
  Company Number: IT-GLAXOSMITHKLINE-B0981109A

PATIENT
  Age: 77 Year
  Sex: Female

DRUGS (3)
  1. ALKERAN [Suspect]
     Indication: PLASMA CELL MYELOMA
     Dosage: 14MG PER DAY
     Route: 048
     Dates: start: 20120618, end: 20130131
  2. VELCADE [Concomitant]
     Indication: PLASMA CELL MYELOMA
     Dosage: 2MG MONTHLY
     Route: 042
     Dates: start: 20120618, end: 20130131
  3. URBASON [Concomitant]
     Indication: PLASMA CELL MYELOMA
     Route: 042
     Dates: start: 20120618, end: 20130131

REACTIONS (1)
  - Pneumonia [Recovered/Resolved]
